FAERS Safety Report 19154593 (Version 1)
Quarter: 2021Q2

REPORT INFORMATION
  Report Type: Spontaneous
  Country: FR (occurrence: FR)
  Receive Date: 20210419
  Receipt Date: 20210419
  Transmission Date: 20210717
  Serious: Yes (Hospitalization, Other)
  Sender: FDA-Public Use
  Company Number: NVSC2021FR077341

PATIENT
  Age: 50 Year
  Sex: Female
  Weight: 102.8 kg

DRUGS (7)
  1. ACUPAN [Concomitant]
     Active Substance: NEFOPAM HYDROCHLORIDE
     Indication: PRODUCT USED FOR UNKNOWN INDICATION
     Dosage: UNK, 6 AMPOULES PER DAY
     Route: 065
  2. METHOTREXATE. [Suspect]
     Active Substance: METHOTREXATE
     Indication: HYPERTENSION
     Dosage: 5 MG, QW
     Route: 065
  3. METHOTREXATE. [Suspect]
     Active Substance: METHOTREXATE
     Dosage: 10 MG, QW
     Route: 065
     Dates: start: 201710
  4. PLAQUENIL [Suspect]
     Active Substance: HYDROXYCHLOROQUINE SULFATE
     Indication: ARTHRALGIA
     Dosage: 2 DF, QD
     Route: 065
     Dates: start: 20150724, end: 20150820
  5. PLAQUENIL [Suspect]
     Active Substance: HYDROXYCHLOROQUINE SULFATE
     Indication: ARTHRITIS
     Dosage: 2 DF, QD
     Route: 065
     Dates: start: 201508, end: 20150903
  6. METHOTREXATE. [Suspect]
     Active Substance: METHOTREXATE
     Dosage: 15 MG, QW
     Route: 065
     Dates: start: 2016, end: 2017
  7. LEVOTHYROX [Concomitant]
     Active Substance: LEVOTHYROXINE
     Indication: THYROID DISORDER
     Dosage: 125 PG
     Route: 065

REACTIONS (16)
  - Acute generalised exanthematous pustulosis [Unknown]
  - Anxiety [Unknown]
  - Toxic skin eruption [Unknown]
  - Skin exfoliation [Unknown]
  - Epidermal necrosis [Unknown]
  - Pallor [Unknown]
  - Cell death [Unknown]
  - Dyspnoea [Recovering/Resolving]
  - Pyrexia [Recovered/Resolved]
  - Pustular psoriasis [Unknown]
  - Diffuse alopecia [Unknown]
  - Rash pustular [Unknown]
  - Rash [Unknown]
  - Eosinophil count increased [Unknown]
  - Rash pruritic [Unknown]
  - Cholestasis [Unknown]

NARRATIVE: CASE EVENT DATE: 2015
